FAERS Safety Report 25931723 (Version 1)
Quarter: 2025Q4

REPORT INFORMATION
  Report Type: Spontaneous
  Country: EU (occurrence: EU)
  Receive Date: 20251016
  Receipt Date: 20251016
  Transmission Date: 20260117
  Serious: Yes (Other)
  Sender: VERTEX
  Company Number: None

PATIENT
  Age: 32 Year
  Sex: Female
  Weight: 48 kg

DRUGS (4)
  1. ELEXACAFTOR\IVACAFTOR\TEZACAFTOR [Suspect]
     Active Substance: ELEXACAFTOR\IVACAFTOR\TEZACAFTOR
     Indication: Cystic fibrosis
     Dosage: 75MG IVACAFTOR/50MG TEZACAFTOR/100MG ELEXACAFTOR, 2 DOSAGE FORM, QD
     Route: 048
     Dates: start: 20210901, end: 20250130
  2. ELEXACAFTOR\IVACAFTOR\TEZACAFTOR [Suspect]
     Active Substance: ELEXACAFTOR\IVACAFTOR\TEZACAFTOR
     Dosage: 75MG IVA/ 50MG TEZA/ 100MG ELEXA; 1 DOSAGE FORM, QD
     Route: 048
     Dates: start: 20250131, end: 20250831
  3. ELEXACAFTOR\IVACAFTOR\TEZACAFTOR [Suspect]
     Active Substance: ELEXACAFTOR\IVACAFTOR\TEZACAFTOR
     Dosage: 75MG IVA/ 50MG TEZA/ 100MG ELEXA; 1 OR 2 TABS EVERY OTHER DAY
     Route: 048
     Dates: start: 20250901
  4. KALYDECO [Suspect]
     Active Substance: IVACAFTOR
     Indication: Cystic fibrosis
     Dosage: 150 MG PER DAY
     Route: 048
     Dates: start: 20210901

REACTIONS (2)
  - Anxiety [Recovered/Resolved]
  - Sleep disorder therapy [Recovered/Resolved]

NARRATIVE: CASE EVENT DATE: 20220622
